FAERS Safety Report 7511153-0 (Version None)
Quarter: 2011Q2

REPORT INFORMATION
  Report Type: 
  Country: None (occurrence: None)
  Receive Date: 20110531
  Receipt Date: 20081122
  Transmission Date: 20111010
  Serious: Yes (Hospitalization, Other)
  Sender: FDA-Public Use
  Company Number: US-BAYER-200839379NA

PATIENT
  Age: 37 Year
  Sex: Male
  Weight: 103 kg

DRUGS (13)
  1. PLASMA [Concomitant]
     Dosage: 4 UNITS
     Route: 042
     Dates: start: 20070607
  2. VANCOMYCIN [Concomitant]
     Dosage: 1.2 GRAMS EVERY 24 HOURS
     Route: 042
  3. TRASYLOL [Suspect]
     Indication: TRICUSPID VALVE REPLACEMENT
     Dosage: 200ML, THEN 50ML/HR
     Route: 042
     Dates: start: 20070607, end: 20070607
  4. PLATELETS [Concomitant]
     Dosage: 2 UNITS
     Route: 042
     Dates: start: 20070607
  5. GENTAMICIN [Concomitant]
     Dosage: 80MG EVERY 12 HOURS
     Route: 042
  6. MAGNESIUM SULFATE [Concomitant]
     Dosage: 4 GRAMS
     Route: 042
     Dates: start: 20070607
  7. ZOSYN [Concomitant]
     Dosage: 2.2 GRAMS EVERY 8 HOURS
     Route: 042
  8. RED BLOOD CELLS [Concomitant]
     Dosage: 4 UNITS
     Route: 042
     Dates: start: 20070607
  9. DAPTOMYCIN [Concomitant]
     Route: 042
  10. CEFUROXIME [Concomitant]
  11. CALCIUM CHLORIDE [Concomitant]
     Dosage: 1 GRAM
     Route: 042
     Dates: start: 20070607
  12. CEFEPIME [Concomitant]
  13. INSULIN [Concomitant]
     Dosage: UNK
     Route: 042
     Dates: start: 20070607

REACTIONS (11)
  - STRESS [None]
  - FEAR [None]
  - PAIN [None]
  - MULTI-ORGAN FAILURE [None]
  - RENAL FAILURE ACUTE [None]
  - UNEVALUABLE EVENT [None]
  - RENAL FAILURE [None]
  - RENAL IMPAIRMENT [None]
  - RENAL INJURY [None]
  - ANXIETY [None]
  - EMOTIONAL DISTRESS [None]
